FAERS Safety Report 6684727-7 (Version None)
Quarter: 2010Q2

REPORT INFORMATION
  Report Type: 
  Country: None (occurrence: None)
  Receive Date: 20100416
  Receipt Date: 20100406
  Transmission Date: 20101027
  Serious: Yes (Hospitalization)
  Sender: FDA-Public Use
  Company Number: US-WYE-H14359810

PATIENT
  Sex: Male
  Weight: 88.98 kg

DRUGS (19)
  1. TORISEL [Suspect]
     Indication: METASTATIC RENAL CELL CARCINOMA
     Route: 042
     Dates: start: 20100309, end: 20100316
  2. GABAPENTIN [Concomitant]
     Route: 048
  3. DETROL [Concomitant]
     Route: 048
  4. ARICEPT [Concomitant]
     Dosage: 10MG FREQUENCY NOT SPECIFIED
     Route: 048
  5. NORVASC [Concomitant]
     Route: 048
  6. ENABLEX [Concomitant]
     Route: 048
  7. HUMULIN 70/30 [Concomitant]
     Route: 058
  8. HUMULIN 70/30 [Concomitant]
     Route: 058
  9. NOVOLIN R [Concomitant]
     Dosage: SLIDING SCALE
     Route: 058
  10. LORAZEPAM [Concomitant]
     Route: 048
  11. LOPRESSOR [Concomitant]
     Route: 048
  12. MS CONTIN [Concomitant]
     Route: 048
  13. MS CONTIN [Concomitant]
     Route: 048
  14. ZOCOR [Concomitant]
     Route: 048
  15. VICODIN [Concomitant]
     Dosage: Q6H PRN PAIN
     Route: 048
  16. AMBIEN [Concomitant]
     Route: 048
  17. LASIX [Concomitant]
     Dosage: 20MG Q24H PRN
     Route: 048
  18. ORAMORPH SR [Concomitant]
  19. DURAGESIC-100 [Concomitant]
     Indication: PAIN
     Route: 061

REACTIONS (3)
  - CONFUSIONAL STATE [None]
  - HALLUCINATION [None]
  - SPEECH DISORDER [None]
